FAERS Safety Report 4973426-5 (Version None)
Quarter: 2006Q2

REPORT INFORMATION
  Report Type: 
  Country: None (occurrence: None)
  Receive Date: 20060413
  Receipt Date: 20060413
  Transmission Date: 20061013
  Serious: Yes (Hospitalization)
  Sender: FDA-Public Use
  Company Number: None

PATIENT
  Age: 79 Year
  Sex: Female
  Weight: 48.3 kg

DRUGS (22)
  1. WARFARIN SODIUM [Suspect]
     Indication: ANTICOAGULANT THERAPY
     Dosage: 3MG PO DAILY
     Route: 048
  2. DIFLUCAN [Suspect]
     Indication: FUNGAL INFECTION
     Dosage: 100 MG PO ?
     Route: 048
  3. COUMADIN [Concomitant]
  4. DARVOCET [Concomitant]
  5. DIFLUCAN [Concomitant]
  6. DIGOXIN [Concomitant]
  7. ECONAZOLE NITRATE [Concomitant]
  8. ENALAPRIL MALEATE [Concomitant]
  9. ISOSORBIDE [Concomitant]
  10. LASIX [Concomitant]
  11. MACROBID [Concomitant]
  12. ELICON [Concomitant]
  13. FORTEO [Concomitant]
  14. MEGESTROL [Concomitant]
  15. PEROXETINE [Concomitant]
  16. PREMARIN [Concomitant]
  17. REMERON [Concomitant]
  18. PREVACIT [Concomitant]
  19. RESTORIL [Concomitant]
  20. ALDACTONE [Concomitant]
  21. AMBIEN [Concomitant]
  22. ORUVAS [Concomitant]

REACTIONS (3)
  - CARDIAC FAILURE CONGESTIVE [None]
  - CONDITION AGGRAVATED [None]
  - INTERNATIONAL NORMALISED RATIO INCREASED [None]
